FAERS Safety Report 11259499 (Version 1)
Quarter: 2015Q3

REPORT INFORMATION
  Report Type: Spontaneous
  Country: US (occurrence: US)
  Receive Date: 20150710
  Receipt Date: 20150710
  Transmission Date: 20151125
  Serious: Yes (Other)
  Sender: FDA-Public Use
  Company Number: US-JNJFOC-20150622716

PATIENT
  Age: 60 Year
  Sex: Female
  Weight: 77.11 kg

DRUGS (6)
  1. BUSPIRONE HYDROCHLORIDE. [Concomitant]
     Active Substance: BUSPIRONE HYDROCHLORIDE
     Indication: PRODUCT USED FOR UNKNOWN INDICATION
     Route: 048
  2. CLOZAPINE. [Concomitant]
     Active Substance: CLOZAPINE
     Indication: BIPOLAR DISORDER
     Route: 048
  3. XANAX [Concomitant]
     Active Substance: ALPRAZOLAM
     Indication: ANXIETY
     Route: 048
     Dates: start: 1995
  4. PAXIL [Concomitant]
     Active Substance: PAROXETINE HYDROCHLORIDE
     Indication: ANTIDEPRESSANT THERAPY
     Route: 048
  5. SYNTHROID [Concomitant]
     Active Substance: LEVOTHYROXINE SODIUM
     Indication: THYROID DISORDER
     Route: 048
  6. TOPAMAX [Suspect]
     Active Substance: TOPIRAMATE
     Indication: BIPOLAR DISORDER
     Route: 048
     Dates: end: 2015

REACTIONS (20)
  - Illogical thinking [Not Recovered/Not Resolved]
  - Balance disorder [Not Recovered/Not Resolved]
  - Adverse drug reaction [Unknown]
  - Abulia [Not Recovered/Not Resolved]
  - Confusional state [Not Recovered/Not Resolved]
  - Dementia [Not Recovered/Not Resolved]
  - Product use issue [Unknown]
  - Mania [Not Recovered/Not Resolved]
  - Irritability [Not Recovered/Not Resolved]
  - Road traffic accident [Recovered/Resolved]
  - Disorientation [Not Recovered/Not Resolved]
  - Cognitive disorder [Recovered/Resolved]
  - Communication disorder [Not Recovered/Not Resolved]
  - Dyscalculia [Not Recovered/Not Resolved]
  - Arthralgia [Not Recovered/Not Resolved]
  - Alopecia [Not Recovered/Not Resolved]
  - Head injury [Recovered/Resolved]
  - Feeling abnormal [Recovered/Resolved]
  - Fall [Unknown]
  - Weight decreased [Not Recovered/Not Resolved]

NARRATIVE: CASE EVENT DATE: 2015
